FAERS Safety Report 6140558-8 (Version None)
Quarter: 2009Q2

REPORT INFORMATION
  Report Type: 
  Country: None (occurrence: None)
  Receive Date: 20090402
  Receipt Date: 20090323
  Transmission Date: 20091009
  Serious: Yes (Other)
  Sender: FDA-Public Use
  Company Number: FR-PFIZER INC-2008005675

PATIENT

DRUGS (6)
  1. SUNITINIB MALATE [Suspect]
     Indication: BREAST CANCER
     Dosage: 37.5 MG, 1X/DAY
     Route: 048
     Dates: start: 20071226, end: 20080114
  2. *CAPECITABINE [Suspect]
     Indication: BREAST CANCER
     Dosage: 1800 MG, UNK
     Dates: start: 20071226, end: 20080108
  3. OMEPRAZOLE [Concomitant]
     Route: 048
     Dates: start: 20071227
  4. ONDANSETRON [Concomitant]
     Route: 048
     Dates: start: 20071227, end: 20080114
  5. PREDNISOLONE [Concomitant]
     Route: 048
     Dates: start: 20080114
  6. PARACETAMOL [Concomitant]
     Route: 048
     Dates: start: 20071101

REACTIONS (1)
  - CYTOLYTIC HEPATITIS [None]
